FAERS Safety Report 8017669-5 (Version None)
Quarter: 2012Q1

REPORT INFORMATION
  Report Type: 
  Country: None (occurrence: None)
  Receive Date: 20120103
  Receipt Date: 20111223
  Transmission Date: 20120608
  Serious: Yes (Hospitalization)
  Sender: FDA-Public Use
  Company Number: US-JNJFOC-20111210649

PATIENT
  Sex: Female
  Weight: 54.43 kg

DRUGS (2)
  1. DURAGESIC-100 [Suspect]
     Indication: PAIN
     Route: 062
  2. DURAGESIC-100 [Suspect]
     Route: 062

REACTIONS (9)
  - EXPIRED DRUG ADMINISTERED [None]
  - WRONG TECHNIQUE IN DRUG USAGE PROCESS [None]
  - EXOSTOSIS [None]
  - BACK PAIN [None]
  - CONDITION AGGRAVATED [None]
  - FRACTURED SACRUM [None]
  - SPINAL CORD COMPRESSION [None]
  - INTERVERTEBRAL DISC PROTRUSION [None]
  - PRODUCT QUALITY ISSUE [None]
